FAERS Safety Report 16476384 (Version 1)
Quarter: 2019Q2

REPORT INFORMATION
  Report Type: Spontaneous
  Country: DE (occurrence: DE)
  Receive Date: 20190626
  Receipt Date: 20190626
  Transmission Date: 20190711
  Serious: Yes (Death, Congenital Anomaly)
  Sender: FDA-Public Use
  Company Number: PHHY2019DE144567

PATIENT

DRUGS (9)
  1. PHENYTOIN. [Suspect]
     Active Substance: PHENYTOIN
     Indication: FOETAL EXPOSURE DURING PREGNANCY
     Dosage: 300 MG, UNK
     Route: 064
     Dates: start: 20080922, end: 20090213
  2. LAMOTRIGINE. [Suspect]
     Active Substance: LAMOTRIGINE
     Indication: FOETAL EXPOSURE DURING PREGNANCY
     Dosage: 1 OT, UNK (50-300 MG/DAY NOT EXACTLY KNOWN)
     Route: 064
     Dates: start: 20080922, end: 20090206
  3. KEPPRA [Suspect]
     Active Substance: LEVETIRACETAM
     Indication: FOETAL EXPOSURE DURING PREGNANCY
     Dosage: 4000 MG, UNK
     Route: 064
     Dates: start: 20080922, end: 20090213
  4. THYROXIN [Concomitant]
     Active Substance: LEVOTHYROXINE
     Indication: FOETAL EXPOSURE DURING PREGNANCY
     Dosage: UNK
     Route: 064
  5. LUMINAL [Suspect]
     Active Substance: PHENOBARBITAL SODIUM
     Indication: FOETAL EXPOSURE DURING PREGNANCY
     Dosage: 50 MG, QD
     Route: 064
     Dates: start: 20080922, end: 20090213
  6. ERGENYL CHRONO [Suspect]
     Active Substance: VALPROIC ACID
     Indication: FOETAL EXPOSURE DURING PREGNANCY
     Dosage: 3000 MG, UNK
     Route: 064
     Dates: start: 20080922, end: 20081231
  7. VIMPAT [Concomitant]
     Active Substance: LACOSAMIDE
     Indication: FOETAL EXPOSURE DURING PREGNANCY
     Dosage: UNK
     Route: 064
  8. TAVOR (LORAZEPAM) [Suspect]
     Active Substance: LORAZEPAM
     Indication: FOETAL EXPOSURE DURING PREGNANCY
     Dosage: 1 OT, PRN
     Route: 064
  9. FRISIUM [Suspect]
     Active Substance: CLOBAZAM
     Indication: FOETAL EXPOSURE DURING PREGNANCY
     Dosage: 20 MG, UNK
     Route: 064
     Dates: start: 20080922, end: 20090213

REACTIONS (7)
  - Brain malformation [Not Recovered/Not Resolved]
  - Foetal growth restriction [Fatal]
  - Maternal exposure during pregnancy [Unknown]
  - Spina bifida [Not Recovered/Not Resolved]
  - Cleft lip and palate [Not Recovered/Not Resolved]
  - Limb malformation [Not Recovered/Not Resolved]
  - Microcephaly [Not Recovered/Not Resolved]

NARRATIVE: CASE EVENT DATE: 20081006
